FAERS Safety Report 5232134-6 (Version None)
Quarter: 2007Q1

REPORT INFORMATION
  Report Type: 
  Country: None (occurrence: None)
  Receive Date: 20061201
  Receipt Date: 20061030
  Transmission Date: 20070707
  Serious: No
  Sender: FDA-Public Use
  Company Number: US200610005414

PATIENT
  Age: 34 Year
  Sex: Female

DRUGS (3)
  1. CYMBALTA [Suspect]
     Indication: ANXIETY
     Dosage: SEE IMAGE
     Dates: end: 20061028
  2. CYMBALTA [Suspect]
     Indication: ANXIETY
     Dosage: SEE IMAGE
     Dates: start: 20060601
  3. KLONOPIN [Concomitant]

REACTIONS (15)
  - AGITATION [None]
  - ALOPECIA [None]
  - ANXIETY [None]
  - BLOOD PRESSURE INCREASED [None]
  - CHEST DISCOMFORT [None]
  - CRYING [None]
  - FLUID RETENTION [None]
  - HEADACHE [None]
  - INFLUENZA LIKE ILLNESS [None]
  - LIBIDO DECREASED [None]
  - NAUSEA [None]
  - PHARYNGOLARYNGEAL PAIN [None]
  - RASH [None]
  - SOMNOLENCE [None]
  - WEIGHT DECREASED [None]
